FAERS Safety Report 6026137-1 (Version None)
Quarter: 2008Q4

REPORT INFORMATION
  Report Type: 
  Country: None (occurrence: None)
  Receive Date: 20081230
  Receipt Date: 20081217
  Transmission Date: 20090506
  Serious: Yes (Hospitalization)
  Sender: FDA-Public Use
  Company Number: SPV1-2008-02743

PATIENT
  Age: 77 Year
  Sex: Female

DRUGS (1)
  1. FOSRENOL [Suspect]
     Dosage: 500 MG, 3X/DAY:TID, ORAL
     Route: 048

REACTIONS (2)
  - FALL [None]
  - WRIST FRACTURE [None]
